FAERS Safety Report 5093549-2 (Version None)
Quarter: 2006Q3

REPORT INFORMATION
  Report Type: 
  Country: None (occurrence: None)
  Receive Date: 20060829
  Receipt Date: 20060814
  Transmission Date: 20061208
  Serious: Yes (Other)
  Sender: FDA-Public Use
  Company Number: US200608003106

PATIENT
  Age: 7 Year
  Sex: Male

DRUGS (1)
  1. HUMULIN L [Suspect]
     Indication: DIABETES MELLITUS
     Dates: start: 20010101

REACTIONS (1)
  - CATARACT [None]
